FAERS Safety Report 5688755-X (Version None)
Quarter: 2008Q1

REPORT INFORMATION
  Report Type: 
  Country: None (occurrence: None)
  Receive Date: 20080331
  Receipt Date: 20080325
  Transmission Date: 20080703
  Serious: Yes (Other)
  Sender: FDA-Public Use
  Company Number: FR-AVENTIS-200810390FR

PATIENT
  Age: 69 Year
  Sex: Female

DRUGS (3)
  1. FLAGYL [Suspect]
     Route: 048
     Dates: start: 20071128, end: 20071205
  2. AMOXICILLIN [Concomitant]
     Route: 048
     Dates: start: 20071128, end: 20071205
  3. NEXIUM [Concomitant]
     Route: 048

REACTIONS (2)
  - AGEUSIA [None]
  - ORAL DISCOMFORT [None]
